FAERS Safety Report 7974226-4 (Version None)
Quarter: 2011Q4

REPORT INFORMATION
  Report Type: 
  Country: None (occurrence: None)
  Receive Date: 20111213
  Receipt Date: 20111206
  Transmission Date: 20120403
  Serious: Yes (Hospitalization, Other)
  Sender: FDA-Public Use
  Company Number: US-MERCK-1112USA00932

PATIENT
  Age: 87 Year
  Sex: Female

DRUGS (2)
  1. FORTEO [Suspect]
     Indication: OSTEOPOROSIS
     Route: 051
     Dates: start: 20101001
  2. FOSAMAX [Suspect]
     Route: 048

REACTIONS (8)
  - FEMUR FRACTURE [None]
  - MYALGIA [None]
  - PERICARDIAL EFFUSION [None]
  - COUGH [None]
  - MUSCLE SPASMS [None]
  - TRANSIENT ISCHAEMIC ATTACK [None]
  - BODY HEIGHT DECREASED [None]
  - PULMONARY CONGESTION [None]
